FAERS Safety Report 4996157-4 (Version None)
Quarter: 2006Q2

REPORT INFORMATION
  Report Type: 
  Country: None (occurrence: None)
  Receive Date: 20060504
  Receipt Date: 20060419
  Transmission Date: 20061013
  Serious: Yes (Death)
  Sender: FDA-Public Use
  Company Number: 2006-DE-02004GD

PATIENT
  Age: 13 Year
  Sex: Female

DRUGS (3)
  1. SALBUTAMOL (SALBUTAMOL) [Suspect]
     Indication: DYSPNOEA
     Dosage: NR, IH
     Route: 055
  2. PREDNISONE TAB [Suspect]
     Indication: DYSPNOEA
     Dosage: NR
  3. AMOXICILLIN [Suspect]
     Indication: DYSPNOEA
     Dosage: NR

REACTIONS (1)
  - ASTHMA [None]
